FAERS Safety Report 4875268-8 (Version None)
Quarter: 2006Q1

REPORT INFORMATION
  Report Type: 
  Country: None (occurrence: None)
  Receive Date: 20060109
  Receipt Date: 20050105
  Transmission Date: 20060701
  Serious: Yes (Hospitalization)
  Sender: FDA-Public Use
  Company Number: US-MERCK-0501USA00599

PATIENT
  Age: 68 Year
  Sex: Male
  Weight: 85 kg

DRUGS (1)
  1. VIOXX [Suspect]
     Indication: SPINAL FRACTURE
     Route: 048
     Dates: start: 20020213, end: 20040930

REACTIONS (6)
  - BACK DISORDER [None]
  - CARDIAC DISORDER [None]
  - CARDIAC FAILURE CHRONIC [None]
  - CARDIAC FAILURE CONGESTIVE [None]
  - DYSPNOEA [None]
  - MENTAL DISORDER [None]
